FAERS Safety Report 26009600 (Version 3)
Quarter: 2025Q4

REPORT INFORMATION
  Report Type: Spontaneous
  Country: CN (occurrence: CN)
  Receive Date: 20251107
  Receipt Date: 20251124
  Transmission Date: 20260118
  Serious: Yes (Other)
  Sender: SANDOZ
  Company Number: CN-002147023-NVSC2025CN169544

PATIENT
  Age: 42 Year
  Sex: Female

DRUGS (1)
  1. TOBRAMYCIN [Suspect]
     Active Substance: TOBRAMYCIN
     Indication: Hordeolum
     Dosage: 0.1 ML, QID
     Route: 047
     Dates: start: 20251027, end: 20251027

REACTIONS (8)
  - Eye pain [Recovering/Resolving]
  - Injury corneal [Recovering/Resolving]
  - Corneal epithelium defect [Unknown]
  - Photophobia [Recovered/Resolved]
  - Lacrimation increased [Recovered/Resolved]
  - Conjunctival hyperaemia [Unknown]
  - Eye oedema [Unknown]
  - Off label use [Unknown]

NARRATIVE: CASE EVENT DATE: 20251027
